FAERS Safety Report 5217467-1 (Version None)
Quarter: 2006Q4

REPORT INFORMATION
  Report Type: 
  Country: None (occurrence: None)
  Receive Date: 20061130
  Receipt Date: 20060627
  Transmission Date: 20070319
  Serious: Yes (Other)
  Sender: FDA-Public Use
  Company Number: US_0509121814

PATIENT
  Sex: Female
  Weight: 113.4 kg

DRUGS (1)
  1. ZYPREXA [Suspect]
     Dosage: ORAL
     Route: 048
     Dates: start: 19960101, end: 20030101

REACTIONS (8)
  - BLOOD CHOLESTEROL ABNORMAL [None]
  - BONE DISORDER [None]
  - DIABETES MELLITUS [None]
  - HYPERGLYCAEMIA [None]
  - HYPERTENSION [None]
  - INSOMNIA [None]
  - PANCREATITIS [None]
  - THINKING ABNORMAL [None]
